FAERS Safety Report 11516451 (Version 1)
Quarter: 2015Q3

REPORT INFORMATION
  Report Type: Spontaneous
  Country: US (occurrence: US)
  Receive Date: 20150917
  Receipt Date: 20150917
  Transmission Date: 20151125
  Serious: No
  Sender: FDA-Public Use
  Company Number: US-PFIZER INC-2015304810

PATIENT
  Age: 53 Year
  Sex: Female

DRUGS (3)
  1. MEDROL [Suspect]
     Active Substance: METHYLPREDNISOLONE
     Dosage: DOSE PACK
  2. RITUXAN [Suspect]
     Active Substance: RITUXIMAB
     Dosage: UNK
  3. MEDROL [Suspect]
     Active Substance: METHYLPREDNISOLONE
     Dosage: 30 MG, DAILY WITH SLOW TAPER

REACTIONS (1)
  - Drug ineffective [Unknown]
